FAERS Safety Report 9638405 (Version 1)
Quarter: 2013Q4

REPORT INFORMATION
  Report Type: Spontaneous
  Country: HU (occurrence: HU)
  Receive Date: 20131022
  Receipt Date: 20131022
  Transmission Date: 20140711
  Serious: Yes (Death, Other)
  Sender: FDA-Public Use
  Company Number: PHHY2013HU115176

PATIENT
  Age: 83 Year
  Sex: Female

DRUGS (4)
  1. PACLITAXEL EBEWE [Suspect]
     Indication: OVARIAN EPITHELIAL CANCER
     Route: 051
     Dates: start: 2010, end: 2010
  2. PACLITAXEL EBEWE [Suspect]
     Indication: OVARIAN CANCER METASTATIC
  3. CARBOPLATIN [Suspect]
     Indication: OVARIAN EPITHELIAL CANCER
  4. CARBOPLATIN [Suspect]
     Indication: OVARIAN CANCER METASTATIC

REACTIONS (3)
  - Death [Fatal]
  - Neuropathy peripheral [Recovered/Resolved with Sequelae]
  - Malignant neoplasm progression [Unknown]
